FAERS Safety Report 9757569 (Version 3)
Quarter: 2014Q1

REPORT INFORMATION
  Report Type: Spontaneous
  Country: US (occurrence: US)
  Receive Date: 20131216
  Receipt Date: 20140212
  Transmission Date: 20141002
  Serious: Yes (Death, Other)
  Sender: FDA-Public Use
  Company Number: US-MERCK-1312USA004866

PATIENT
  Age: 60 Year
  Sex: Female
  Weight: 40.82 kg

DRUGS (1)
  1. TEMODAR [Suspect]
     Indication: NEOPLASM MALIGNANT
     Dosage: 240 MG PER DAY FOR 5 DAYS PER CYCLE
     Route: 048
     Dates: start: 201307, end: 20131016

REACTIONS (4)
  - Neuroendocrine tumour [Fatal]
  - Metastases to liver [Unknown]
  - Metastases to lung [Unknown]
  - Metastases to bone marrow [Unknown]
